FAERS Safety Report 5209835-9 (Version None)
Quarter: 2006Q4

REPORT INFORMATION
  Report Type: 
  Country: None (occurrence: None)
  Receive Date: 20061128
  Receipt Date: 20060919
  Transmission Date: 20070319
  Serious: No
  Sender: FDA-Public Use
  Company Number: S06-USA-03735-01

PATIENT
  Age: 45 Year
  Sex: Male

DRUGS (1)
  1. CAMPRAL [Suspect]
     Indication: ALCOHOLISM
     Dosage: 666 MG QD PO
     Route: 048
     Dates: start: 20060101, end: 20060101

REACTIONS (2)
  - DIARRHOEA [None]
  - DRUG SCREEN FALSE POSITIVE [None]
